FAERS Safety Report 10913453 (Version 2)
Quarter: 2015Q2

REPORT INFORMATION
  Report Type: Spontaneous
  Country: US (occurrence: US)
  Receive Date: 20150313
  Receipt Date: 20150608
  Transmission Date: 20150821
  Serious: Yes (Hospitalization, Other)
  Sender: FDA-Public Use
  Company Number: US-009507513-1110USA00165

PATIENT
  Sex: Female

DRUGS (5)
  1. ALENDRONATE SODIUM. [Suspect]
     Active Substance: ALENDRONATE SODIUM
     Indication: BONE DENSITY DECREASED
     Dosage: 70 MG, UNK
     Route: 048
     Dates: start: 2008, end: 2009
  2. FOSAMAX [Suspect]
     Active Substance: ALENDRONATE SODIUM
     Indication: BONE DENSITY DECREASED
     Dosage: 70 MG, UNK
     Route: 048
     Dates: start: 2004, end: 2008
  3. BONIVA [Suspect]
     Active Substance: IBANDRONATE SODIUM
     Indication: BONE DENSITY DECREASED
     Dosage: 150 MG, QM
     Route: 048
     Dates: start: 2009, end: 2010
  4. ALENDRONATE SODIUM. [Suspect]
     Active Substance: ALENDRONATE SODIUM
     Dosage: 70 MG, UNK
     Dates: start: 20080327, end: 20090708
  5. FOSAMAX [Suspect]
     Active Substance: ALENDRONATE SODIUM
     Indication: OSTEOPENIA

REACTIONS (15)
  - Hypertension [Unknown]
  - Treatment noncompliance [Unknown]
  - Thyroidectomy [Unknown]
  - Femur fracture [Unknown]
  - Femur fracture [Unknown]
  - Open reduction of fracture [Unknown]
  - Anxiety disorder [Unknown]
  - Hypokalaemia [Unknown]
  - Thyroid disorder [Unknown]
  - Soft tissue disorder [Unknown]
  - Hypercholesterolaemia [Unknown]
  - Intramedullary rod insertion [Unknown]
  - Eye operation [Unknown]
  - Female genital operation [Unknown]
  - Bone disorder [Unknown]

NARRATIVE: CASE EVENT DATE: 20091005
